FAERS Safety Report 20091637 (Version 5)
Quarter: 2022Q3

REPORT INFORMATION
  Report Type: Report from Study
  Country: AT (occurrence: AT)
  Receive Date: 20211119
  Receipt Date: 20220915
  Transmission Date: 20221027
  Serious: Yes (Hospitalization)
  Sender: FDA-Public Use
  Company Number: AT-MORPHOSYS US-2021-MOR001322-AT

PATIENT

DRUGS (89)
  1. TAFASITAMAB [Suspect]
     Active Substance: TAFASITAMAB
     Indication: Diffuse large B-cell lymphoma
     Dosage: 1140 MILLIGRAM ONCE/WEEK, 900 MG ONCE/WEEK
     Route: 042
     Dates: start: 20210810, end: 20211017
  2. LENALIDOMIDE [Suspect]
     Active Substance: LENALIDOMIDE
     Indication: Diffuse large B-cell lymphoma
     Dosage: 25 MILLIGRAM ONCE/DAY DAY1 TO 10
     Route: 048
     Dates: start: 20210811, end: 20211011
  3. LENALIDOMIDE [Suspect]
     Active Substance: LENALIDOMIDE
     Dosage: 20 MILLIGRAM ONCE/DAY DAY1 TO 10
     Route: 048
     Dates: start: 20211012, end: 20211017
  4. RITUXIMAB [Suspect]
     Active Substance: RITUXIMAB
     Indication: Diffuse large B-cell lymphoma
     Dosage: UNK
     Dates: start: 20210810
  5. CYCLOPHOSPHAMIDE [Suspect]
     Active Substance: CYCLOPHOSPHAMIDE
     Indication: Diffuse large B-cell lymphoma
     Dosage: UNK
     Dates: start: 20210810
  6. DOXORUBICIN [Suspect]
     Active Substance: DOXORUBICIN
     Indication: Diffuse large B-cell lymphoma
     Dosage: UNK
     Dates: start: 20210810
  7. VINCRISTINE [Suspect]
     Active Substance: VINCRISTINE
     Indication: Diffuse large B-cell lymphoma
     Dosage: UNK
     Dates: start: 20210810
  8. PREDNISOLONE [Suspect]
     Active Substance: PREDNISOLONE
     Indication: Diffuse large B-cell lymphoma
     Dosage: UNK
     Dates: start: 20210810
  9. SERETIDE [Concomitant]
     Active Substance: FLUTICASONE PROPIONATE\SALMETEROL XINAFOATE
     Indication: Asthma
     Dosage: 1 APPLICATION, BID
     Route: 055
     Dates: start: 2006
  10. SERETIDE [Concomitant]
     Active Substance: FLUTICASONE PROPIONATE\SALMETEROL XINAFOATE
     Dosage: 1 APPLICATION, BID
     Route: 055
     Dates: start: 20211031
  11. MOMETASONE FUROATE [Concomitant]
     Active Substance: MOMETASONE FUROATE
     Indication: Papilloma
     Dosage: 2 PUFFS, BID
     Route: 045
     Dates: start: 20200304
  12. LACTULOSE [Concomitant]
     Active Substance: LACTULOSE
     Indication: Constipation
     Dosage: 1-2 TABLESPOON, PRN
     Route: 048
     Dates: start: 20210801
  13. QUETIAPINE FUMARATE [Concomitant]
     Active Substance: QUETIAPINE FUMARATE
     Indication: Depression
     Dosage: 25 MILLIGRAM, QD
     Route: 048
     Dates: start: 2021
  14. QUETIAPINE FUMARATE [Concomitant]
     Active Substance: QUETIAPINE FUMARATE
     Dosage: 25 MILLIGRAM, QD
     Route: 048
     Dates: start: 20211026
  15. GLANDOMED [Concomitant]
     Indication: Prophylaxis
     Dosage: 1 APPLICATION, PRN
     Route: 048
     Dates: start: 20210803
  16. CANRENOATE POTASSIUM [Concomitant]
     Active Substance: CANRENOATE POTASSIUM
     Indication: Prophylaxis
     Dosage: 1 BAG, BID
     Route: 048
     Dates: start: 20210807
  17. BISOPROLOL FUMARATE [Concomitant]
     Active Substance: BISOPROLOL FUMARATE
     Indication: Hypertension
     Dosage: 2.5 MILLIGRAM, QD
     Route: 048
     Dates: start: 20210809
  18. BISOPROLOL FUMARATE [Concomitant]
     Active Substance: BISOPROLOL FUMARATE
     Dosage: 2.5 MILLIGRAM, BID
     Route: 048
     Dates: start: 20211024
  19. ASPIRIN [Concomitant]
     Active Substance: ASPIRIN
     Indication: Thrombosis prophylaxis
     Dosage: 100 MILLIGRAM, QD
     Route: 048
     Dates: start: 20210810
  20. ASPIRIN [Concomitant]
     Active Substance: ASPIRIN
     Indication: Neurological symptom
     Dosage: 100 MILLIGRAM, QD
     Route: 048
     Dates: start: 20211027
  21. PANTOPRAZOLE SODIUM [Concomitant]
     Active Substance: PANTOPRAZOLE SODIUM
     Indication: Prophylaxis
     Dosage: 40 MILLIGRAM, QD
     Route: 048
     Dates: start: 20210821
  22. SULFAMETROLE\TRIMETHOPRIM [Concomitant]
     Active Substance: SULFAMETROLE\TRIMETHOPRIM
     Indication: Febrile neutropenia
     Dosage: 1 TABLET TIS (3 TIMES A WEEK)
     Route: 048
     Dates: start: 20210820
  23. SULFAMETROLE\TRIMETHOPRIM [Concomitant]
     Active Substance: SULFAMETROLE\TRIMETHOPRIM
     Indication: Pneumonia
     Dosage: 1 TABLET TIS (3 TIMES A WEEK)
     Route: 048
     Dates: start: 20211025
  24. AMLODIPINE [Concomitant]
     Active Substance: AMLODIPINE BESYLATE
     Indication: Hypertension
     Dosage: 5 MILLIGRAM, QD
     Route: 048
     Dates: start: 20210825
  25. AMLODIPINE [Concomitant]
     Active Substance: AMLODIPINE BESYLATE
     Dosage: 10 MILLIGRAM, BID
     Route: 048
     Dates: start: 20211024
  26. VALACYCLOVIR HYDROCHLORIDE [Concomitant]
     Active Substance: VALACYCLOVIR HYDROCHLORIDE
     Indication: Febrile neutropenia
     Dosage: 500 MILLIGRAM, BID
     Route: 048
     Dates: start: 20210820
  27. VALACYCLOVIR HYDROCHLORIDE [Concomitant]
     Active Substance: VALACYCLOVIR HYDROCHLORIDE
     Indication: Diffuse large B-cell lymphoma
     Dosage: 500 MILLIGRAM, BID
     Route: 048
     Dates: start: 20211024
  28. HYDROMORPHONE HYDROCHLORIDE [Concomitant]
     Active Substance: HYDROMORPHONE HYDROCHLORIDE
     Indication: Diffuse large B-cell lymphoma
     Dosage: 2 MILLIGRAM, BID
     Route: 048
     Dates: start: 20210825
  29. HYDROMORPHONE HYDROCHLORIDE [Concomitant]
     Active Substance: HYDROMORPHONE HYDROCHLORIDE
     Dosage: 1.3 MILLIGRAM, PRN
     Route: 048
     Dates: start: 20210825
  30. HYDROMORPHONE HYDROCHLORIDE [Concomitant]
     Active Substance: HYDROMORPHONE HYDROCHLORIDE
     Dosage: 2 MILLIGRAM, BID
     Route: 048
     Dates: start: 20211027
  31. POLYETHYLENE GLYCOL 3350\POTASSIUM CHLORIDE\SODIUM BICARBONATE\SODIUM [Concomitant]
     Active Substance: POLYETHYLENE GLYCOL 3350\POTASSIUM CHLORIDE\SODIUM BICARBONATE\SODIUM CHLORIDE
     Indication: Constipation
     Dosage: 2 APPLICATION, PRN
     Route: 048
     Dates: start: 20210921
  32. POLYETHYLENE GLYCOL 3350\POTASSIUM CHLORIDE\SODIUM BICARBONATE\SODIUM [Concomitant]
     Active Substance: POLYETHYLENE GLYCOL 3350\POTASSIUM CHLORIDE\SODIUM BICARBONATE\SODIUM CHLORIDE
     Dosage: 1 APPLICATION, PRN
     Route: 048
     Dates: start: 20211027
  33. ACETAMINOPHEN [Concomitant]
     Active Substance: ACETAMINOPHEN
     Indication: Diffuse large B-cell lymphoma
     Dosage: 500 MILLIGRAM, TID
     Route: 048
     Dates: start: 20210825
  34. ACETAMINOPHEN [Concomitant]
     Active Substance: ACETAMINOPHEN
     Indication: Abdominal pain
     Dosage: 1 TABLET, PRN
     Route: 048
     Dates: start: 20211018, end: 20211026
  35. FILGRASTIM [Concomitant]
     Active Substance: FILGRASTIM
     Indication: Neutropenic sepsis
     Dosage: 6 MILLIGRAM, ONCE
     Route: 058
     Dates: start: 20211013, end: 20211013
  36. FILGRASTIM [Concomitant]
     Active Substance: FILGRASTIM
     Dosage: 48 INTERNATIONAL UNIT, QD
     Route: 058
     Dates: start: 20211017, end: 20211022
  37. TAZOBACTAM [Concomitant]
     Active Substance: TAZOBACTAM
     Indication: Neutropenic sepsis
     Dosage: 4.5 GRAM, ONCE
     Route: 042
     Dates: start: 20211017, end: 20211017
  38. TAZOBACTAM [Concomitant]
     Active Substance: TAZOBACTAM
     Dosage: 4.5 GRAM, TID
     Route: 042
     Dates: start: 20211018, end: 20211018
  39. RINGER LACTATE [CALCIUM CHLORIDE DIHYDRATE;MAGNESIUM CHLORIDE;POTASSIU [Concomitant]
     Indication: Neutropenic sepsis
     Dosage: 1 APPLICATION, PRN
     Route: 042
     Dates: start: 20211017, end: 20211020
  40. CAFEDRINE HYDROCHLORIDE\THEODRENALINE [Concomitant]
     Active Substance: CAFEDRINE HYDROCHLORIDE\THEODRENALINE
     Indication: Neutropenic sepsis
     Dosage: 1 APPLICATION, SIX TIME A DAY
     Route: 042
     Dates: start: 20211018, end: 20211018
  41. CAFEDRINE HYDROCHLORIDE\THEODRENALINE [Concomitant]
     Active Substance: CAFEDRINE HYDROCHLORIDE\THEODRENALINE
     Indication: Hypotension
  42. PERFALGAN [Concomitant]
     Active Substance: ACETAMINOPHEN
     Indication: Neutropenic sepsis
     Dosage: 10 MILLIGRAM, BID
     Route: 042
     Dates: start: 20211018, end: 20211018
  43. MEPERIDINE [Concomitant]
     Active Substance: MEPERIDINE
     Indication: Abdominal pain
     Dosage: 50 MILLIGRAM, ONCE
     Route: 042
     Dates: start: 20211018, end: 20211018
  44. CALCIUM CHLORIDE\MAGNESIUM CHLORIDE\POTASSIUM CHLORIDE\SODIUM ACETATE\ [Concomitant]
     Active Substance: CALCIUM CHLORIDE\MAGNESIUM CHLORIDE\POTASSIUM CHLORIDE\SODIUM ACETATE\SODIUM CHLORIDE
     Indication: Neutropenic sepsis
     Dosage: 500 MILLILITER, ONCE
     Route: 042
     Dates: start: 20211018, end: 20211018
  45. ONDANSETRON [Concomitant]
     Active Substance: ONDANSETRON
     Indication: Prophylaxis
     Dosage: 4 MILLIGRAM, ONCE
     Route: 042
     Dates: start: 20211018, end: 20211018
  46. ONDANSETRON [Concomitant]
     Active Substance: ONDANSETRON
     Dosage: 8 MILLIGRAM, PRN
     Route: 048
     Dates: start: 20211027
  47. NOREPINEPHRINE [Concomitant]
     Active Substance: NOREPINEPHRINE
     Indication: Hypotension
     Dosage: 1 APPLICATION, PRN
     Route: 042
     Dates: start: 20211018, end: 20211019
  48. VASOPRESSIN [Concomitant]
     Active Substance: VASOPRESSIN
     Indication: Hypotension
     Dosage: 1 APPLICATION, PRN
     Route: 042
     Dates: start: 20211018, end: 20211019
  49. PENTAGLOBIN [Concomitant]
     Active Substance: HUMAN IMMUNOGLOBULIN G
     Indication: Neutropenic sepsis
     Dosage: 1 APPLICATION, PRN
     Route: 042
     Dates: start: 20211018, end: 20211019
  50. AZITHROMYCIN [Concomitant]
     Active Substance: AZITHROMYCIN
     Indication: Pneumonia
     Dosage: 500 MILLIGRAM, QD
     Route: 048
     Dates: start: 20211018, end: 20211020
  51. LANDIOLOL [Concomitant]
     Active Substance: LANDIOLOL
     Indication: Supraventricular tachycardia
     Dosage: 1 APPLICATION, PRN
     Route: 042
     Dates: start: 20211018, end: 20211020
  52. BEPANTHEN [BENZALKONIUM CHLORIDE;DEXPANTHENOL;PRUNUS DULCIS OIL] [Concomitant]
     Indication: Erythema
     Dosage: 1 APPLICATION, PRN
     Route: 061
     Dates: start: 20211018, end: 20211020
  53. HYDROCORTISONE ACETATE [Concomitant]
     Active Substance: HYDROCORTISONE ACETATE
     Indication: Neutropenic sepsis
     Dosage: 100 MILLIGRAM, TID
     Route: 048
     Dates: start: 20211018, end: 20211021
  54. HYDROCORTISONE ACETATE [Concomitant]
     Active Substance: HYDROCORTISONE ACETATE
     Dosage: 50 MILLIGRAM, PRN
     Route: 048
     Dates: start: 20211021, end: 20211027
  55. L-CARNITIN [LEVOCARNITINE] [Concomitant]
     Indication: Neutropenic sepsis
     Dosage: 1 APPLICATION, QD
     Route: 042
     Dates: start: 20211018, end: 20211027
  56. CEVITOL [ASCORBIC ACID] [Concomitant]
     Indication: Neutropenic sepsis
     Dosage: 500 MILLIGRAM, QD
     Route: 042
     Dates: start: 20211018, end: 20211027
  57. VITAMINS [Concomitant]
     Active Substance: VITAMINS
     Indication: Neutropenic sepsis
     Dosage: 1 APPLICATION, QD
     Route: 042
     Dates: start: 20211018, end: 20211027
  58. VITAMIN B1 [Concomitant]
     Active Substance: THIAMINE HYDROCHLORIDE
     Indication: Neutropenic sepsis
     Dosage: 300 MILLIGRAM, QD
     Route: 042
     Dates: start: 20211018, end: 20211027
  59. MEROPENEM [Concomitant]
     Active Substance: MEROPENEM
     Indication: Neutropenic sepsis
     Dosage: 2 GRAM, TID
     Route: 042
     Dates: start: 20211018, end: 20211028
  60. HUMAN RED BLOOD CELL [Concomitant]
     Active Substance: HUMAN RED BLOOD CELL
     Indication: Thrombocytopenia
     Dosage: 300 MILLILITER, BID
     Route: 042
     Dates: start: 20211019, end: 20211019
  61. KONAKION [Concomitant]
     Active Substance: PHYTONADIONE
     Indication: Neutropenic sepsis
     Dosage: 10 MILLIGRAM, ONCE
     Route: 048
     Dates: start: 20211019, end: 20211019
  62. 3M CAVILON ANTIFUNGAL [Concomitant]
     Active Substance: MICONAZOLE NITRATE
     Indication: Erythema
     Dosage: 1 APPLICATION, BID
     Route: 061
     Dates: start: 20211019, end: 20211019
  63. BACTRIM [Concomitant]
     Active Substance: SULFAMETHOXAZOLE\TRIMETHOPRIM
     Indication: Neutropenic sepsis
     Dosage: 250 MILLIGRAM, EVERY OTHER DAY
     Route: 042
     Dates: start: 20211019, end: 20211023
  64. SELENASE [SODIUM SELENATE] [Concomitant]
     Indication: Neutropenic sepsis
     Dosage: 1000 MICROGRAM, QD
     Route: 042
     Dates: start: 20211019, end: 20211024
  65. PLATELETS [Concomitant]
     Active Substance: HUMAN PLATELET, ALLOGENIC
     Indication: Thrombocytopenia
     Dosage: 250 MILLILITER, BID
     Route: 042
     Dates: start: 20211019, end: 20211021
  66. PLATELETS [Concomitant]
     Active Substance: HUMAN PLATELET, ALLOGENIC
     Dosage: 250 MILLILITER, QD
     Route: 042
     Dates: start: 20211022, end: 20211024
  67. TROMMCARDIN [Concomitant]
     Indication: Neutropenic sepsis
     Dosage: 1 APPLICATION, PRN
     Route: 042
     Dates: start: 20211019, end: 20211027
  68. RESOURCE PROTEIN [CARBOHYDRATES NOS;FATS NOS;MINERALS NOS;PROTEINS NOS [Concomitant]
     Indication: Diffuse large B-cell lymphoma
     Dosage: 200 MILLILITER, ONCE
     Route: 048
     Dates: start: 20211020, end: 20211020
  69. PIRITRAMID HAMELN [Concomitant]
     Indication: Abdominal pain
     Dosage: 7.5 MILLIGRAM, PRN
     Route: 042
     Dates: start: 20211020, end: 20211021
  70. AMINO ACIDS\DEXTROSE\ELECTROLYTES NOS\SOYBEAN OIL [Concomitant]
     Active Substance: AMINO ACIDS\DEXTROSE\ELECTROLYTES NOS\SOYBEAN OIL
     Indication: Neutropenic sepsis
     Dosage: 1 APPLICATION, CONTINUOUS
     Route: 042
     Dates: start: 20211020, end: 20211026
  71. BERODUALIN [Concomitant]
     Indication: Asthma
     Dosage: 20 DROPS, QID
     Route: 048
     Dates: start: 20211020
  72. KALIUM L MALAT [Concomitant]
     Indication: Neutropenic sepsis
     Dosage: 1 APPLICATION, ONCE
     Route: 042
     Dates: start: 20211021, end: 20211021
  73. POTASSIUM CHLORIDE [Concomitant]
     Active Substance: POTASSIUM CHLORIDE
     Indication: Neutropenic sepsis
     Dosage: 1 APPLICATION, CONTINUOUS
     Route: 042
     Dates: start: 20211021, end: 20211027
  74. LASIX [Concomitant]
     Active Substance: FUROSEMIDE
     Indication: Oedema peripheral
     Dosage: 20 MILLIGRAM, PRN
     Route: 048
     Dates: start: 20211021, end: 20211027
  75. AMIODARONE HYDROCHLORIDE [Concomitant]
     Active Substance: AMIODARONE HYDROCHLORIDE
     Indication: Supraventricular tachycardia
     Dosage: 300 MILLIGRAM, ONCE
     Route: 042
     Dates: start: 20211022, end: 20211022
  76. AMIODARONE HYDROCHLORIDE [Concomitant]
     Active Substance: AMIODARONE HYDROCHLORIDE
     Dosage: 300 MILLIGRAM, ONCE
     Route: 048
     Dates: start: 20211024, end: 20211024
  77. CHOLECALCIFEROL [Concomitant]
     Active Substance: CHOLECALCIFEROL
     Indication: Prophylaxis
     Dosage: 35 DROPS, ONCE A WEEK
     Route: 048
     Dates: start: 20211022
  78. GLUCOSE 1 PHOSPHAT [Concomitant]
     Indication: Neutropenic sepsis
     Dosage: 1 APPLICATION, QD
     Route: 042
     Dates: start: 20211022, end: 20211023
  79. LYMPHATIC DRAINAGE [Concomitant]
     Indication: Oedema peripheral
     Dosage: 1 APPLICATION, PRN
     Route: 061
     Dates: start: 20211022, end: 20211027
  80. MYCOSTATIN [Concomitant]
     Active Substance: NYSTATIN
     Indication: Fungal infection
     Dosage: 1 APPLICATION, QID
     Route: 048
     Dates: start: 20211022, end: 20211029
  81. MAGNESIUM GLUCONICUM [Concomitant]
     Indication: Neutropenic sepsis
     Dosage: 1 APPLICATION, QD
     Route: 042
     Dates: start: 20211023, end: 20211024
  82. ALMOND OIL [Concomitant]
     Active Substance: ALMOND OIL
     Indication: Erythema
     Dosage: 1 APPLICATION, PRN
     Route: 061
     Dates: start: 20211023, end: 20211025
  83. ALMOND OIL [Concomitant]
     Active Substance: ALMOND OIL
     Indication: Erythema
  84. URAPIDIL [Concomitant]
     Active Substance: URAPIDIL
     Indication: Hypertension
     Dosage: 25 MILLIGRAM, BID
     Route: 042
     Dates: start: 20211024, end: 20211024
  85. MUNDISAL [Concomitant]
     Indication: Mucosal inflammation
     Dosage: 1 APPLICATION, PRN
     Route: 048
     Dates: start: 20211024, end: 20211030
  86. RAMIPRIL [Concomitant]
     Active Substance: RAMIPRIL
     Indication: Hypertension
     Dosage: 5 MILLIGRAM, QD
     Route: 048
     Dates: start: 20211025
  87. LOVENOX [Concomitant]
     Active Substance: ENOXAPARIN SODIUM
     Indication: Neurological symptom
     Dosage: 4000 INTERNATIONAL UNIT, ONCE
     Route: 058
     Dates: start: 20211025, end: 20211029
  88. METOCLOPRAMIDE HYDROCHLORIDE [Concomitant]
     Active Substance: METOCLOPRAMIDE HYDROCHLORIDE
     Indication: Prophylaxis
     Dosage: 1 TABLET, PRN
     Route: 048
     Dates: start: 20211027
  89. ACETAMINOPHEN [Concomitant]
     Active Substance: ACETAMINOPHEN
     Indication: Tension headache
     Dosage: 500 MILLIGRAM, ONCE
     Route: 048
     Dates: start: 20211030, end: 20211030

REACTIONS (1)
  - Neutropenic sepsis [Recovered/Resolved]

NARRATIVE: CASE EVENT DATE: 20211017
